FAERS Safety Report 4482882-0 (Version None)
Quarter: 2004Q4

REPORT INFORMATION
  Report Type: 
  Country: None (occurrence: None)
  Receive Date: 20041022
  Receipt Date: 20041015
  Transmission Date: 20050328
  Serious: Yes (Hospitalization, Other)
  Sender: FDA-Public Use
  Company Number: BR-MERCK-0410BRA00376

PATIENT
  Age: 74 Year
  Sex: Female

DRUGS (3)
  1. VIOXX [Suspect]
     Indication: BONE PAIN
     Route: 048
     Dates: start: 20040912, end: 20040917
  2. ACETAMINOPHEN [Concomitant]
     Indication: BONE PAIN
     Route: 048
     Dates: start: 20040912, end: 20040921
  3. CODEINE [Concomitant]
     Indication: BONE PAIN
     Route: 048
     Dates: start: 20040912, end: 20040921

REACTIONS (1)
  - CEREBROVASCULAR ACCIDENT [None]
